FAERS Safety Report 5490166-7 (Version None)
Quarter: 2007Q4

REPORT INFORMATION
  Report Type: 
  Country: None (occurrence: None)
  Receive Date: 20071018
  Receipt Date: 20071015
  Transmission Date: 20080405
  Serious: Yes (Death)
  Sender: FDA-Public Use
  Company Number: DE-BOEHRINGER INGELHEIM PHARMACEUTICALS, INC.-2007-DE-05934DE

PATIENT
  Sex: Male
  Weight: 93 kg

DRUGS (9)
  1. SPIRIVA [Suspect]
     Indication: CHRONIC OBSTRUCTIVE PULMONARY DISEASE
     Route: 055
     Dates: start: 20070615, end: 20070725
  2. SHORT ACTING BETA-AGONIST [Concomitant]
  3. LONG-ACTING BETA-AGONISTS [Concomitant]
  4. SHORT-ACTING ANTICHOLINERGICUM [Concomitant]
  5. INHALATIVE CORTICOSTEROIDS [Concomitant]
  6. THEOPHYLLINE [Concomitant]
  7. FUROSEMIDE [Concomitant]
     Indication: CARDIAC FAILURE
  8. RAMIPLUS [Concomitant]
     Indication: CARDIAC FAILURE
     Dosage: 2,5/12,5
  9. OMEPRAZOLE [Concomitant]
     Indication: PROPHYLAXIS AGAINST GASTROINTESTINAL ULCER

REACTIONS (1)
  - BRAIN NEOPLASM [None]
